FAERS Safety Report 10605519 (Version 2)
Quarter: 2014Q4

REPORT INFORMATION
  Report Type: Other
  Country: FR (occurrence: FR)
  Receive Date: 20141125
  Receipt Date: 20141125
  Transmission Date: 20150529
  Serious: Yes (Hospitalization)
  Sender: FDA-Public Use
  Company Number: FR-AUROBINDO-AUR-APL-2013-10063

PATIENT
  Age: 68 Year
  Sex: Male

DRUGS (10)
  1. LYRICA [Suspect]
     Active Substance: PREGABALIN
     Indication: NEUROPATHY PERIPHERAL
     Dosage: 1 DF,TWO TIMES A DAY,
     Dates: start: 20131014
  2. PERINDOPRIL AUROBINDO 2MG TABLET [Suspect]
     Active Substance: PERINDOPRIL
     Indication: ISCHAEMIC STROKE
     Dosage: 2 MG, DAILY
     Route: 048
     Dates: start: 20131015, end: 20131021
  3. TAHOR [Suspect]
     Active Substance: ATORVASTATIN CALCIUM
     Indication: PROPHYLAXIS
  4. TOBREX [Suspect]
     Active Substance: TOBRAMYCIN
     Indication: PRODUCT USED FOR UNKNOWN INDICATION
     Dosage: 1 DF,3 TIMES A DAY,
     Route: 047
     Dates: start: 20131017
  5. KARDEGIC [Suspect]
     Active Substance: ASPIRIN LYSINE
     Indication: ISCHAEMIC STROKE
     Dosage: 1 DF, (160MG), DAILY
     Route: 048
     Dates: start: 20131014
  6. BACTRIM [Suspect]
     Active Substance: SULFAMETHOXAZOLE\TRIMETHOPRIM
     Indication: BACTERIAL PYELONEPHRITIS
     Dosage: 2 DF,TWO TIMES A DAY,
     Route: 042
     Dates: start: 20131011, end: 20131020
  7. TAHOR [Suspect]
     Active Substance: ATORVASTATIN CALCIUM
     Indication: ISCHAEMIC STROKE
     Dosage: 80 MG,DAILY,
     Route: 048
     Dates: start: 20131014
  8. LOVENOX [Suspect]
     Active Substance: ENOXAPARIN SODIUM
     Indication: THROMBOSIS PROPHYLAXIS
     Dosage: .4 ML,ONCE A DAY,
     Route: 058
     Dates: start: 20131003
  9. KARDEGIC [Suspect]
     Active Substance: ASPIRIN LYSINE
     Indication: PROPHYLAXIS
  10. PERFALGAN [Suspect]
     Active Substance: ACETAMINOPHEN
     Indication: PRODUCT USED FOR UNKNOWN INDICATION
     Dosage: 100 ML,FOUR TIMES/DAY
     Route: 042
     Dates: start: 20131009

REACTIONS (9)
  - Urinary tract infection [None]
  - Eosinophilia [Unknown]
  - Hepatocellular injury [Unknown]
  - Pyrexia [Unknown]
  - Toxocariasis [None]
  - Drug hypersensitivity [Unknown]
  - Enterobacter infection [None]
  - Rash maculo-papular [Recovered/Resolved]
  - Dermatitis exfoliative [None]

NARRATIVE: CASE EVENT DATE: 20131020
